FAERS Safety Report 10874828 (Version 1)
Quarter: 2015Q1

REPORT INFORMATION
  Report Type: Spontaneous
  Country: US (occurrence: US)
  Receive Date: 20150227
  Receipt Date: 20150227
  Transmission Date: 20150721
  Serious: Yes (Death)
  Sender: FDA-Public Use
  Company Number: US-BANPHARM-20153523

PATIENT
  Age: 28 Year
  Sex: Male

DRUGS (2)
  1. DIPHENHYDRAMINE UNKNOWN PRODUCT [Suspect]
     Active Substance: DIPHENHYDRAMINE
  2. DINITROPHENOL [Suspect]
     Active Substance: 2,4-DINITROPHENOL
     Indication: SUICIDE ATTEMPT
     Dosage: 4 G,

REACTIONS (8)
  - Somnolence [None]
  - Hyperhidrosis [None]
  - Heart rate increased [None]
  - Toxicity to various agents [None]
  - Exposure via ingestion [None]
  - Completed suicide [Fatal]
  - Agitation [None]
  - Cardiac arrest [None]
